FAERS Safety Report 8391303-7 (Version None)
Quarter: 2012Q2

REPORT INFORMATION
  Report Type: 
  Country: None (occurrence: None)
  Receive Date: 20120529
  Receipt Date: 20110929
  Transmission Date: 20120825
  Serious: No
  Sender: FDA-Public Use
  Company Number: US-ABBOTT-11P-163-0859449-00

PATIENT
  Age: 69 Year
  Sex: Female
  Weight: 124.4 kg

DRUGS (10)
  1. VITAMIN TAB [Concomitant]
     Indication: PRODUCT USED FOR UNKNOWN INDICATION
  2. NOVOLOG [Concomitant]
     Indication: DIABETES MELLITUS
     Dosage: INSULIN
  3. MS CONTIN [Suspect]
     Indication: ANALGESIC THERAPY
  4. LIPITOR [Concomitant]
     Indication: BLOOD CHOLESTEROL INCREASED
  5. PANTOPRAZOLE [Concomitant]
     Indication: DYSPEPSIA
  6. ZEMPLAR [Suspect]
     Indication: NEPHROPATHY
     Dates: start: 20110915
  7. ASPIRIN [Concomitant]
     Indication: PRODUCT USED FOR UNKNOWN INDICATION
  8. NEURONTIN [Concomitant]
     Indication: PRODUCT USED FOR UNKNOWN INDICATION
  9. RENVELA [Concomitant]
     Indication: PRODUCT USED FOR UNKNOWN INDICATION
  10. IRON [Concomitant]
     Indication: PRODUCT USED FOR UNKNOWN INDICATION

REACTIONS (1)
  - CONSTIPATION [None]
